FAERS Safety Report 23598468 (Version 2)
Quarter: 2024Q2

REPORT INFORMATION
  Report Type: Spontaneous
  Country: US (occurrence: US)
  Receive Date: 20240306
  Receipt Date: 20240613
  Transmission Date: 20240716
  Serious: No
  Sender: FDA-Public Use
  Company Number: US-BRISTOL-MYERS SQUIBB COMPANY-2024-034600

PATIENT
  Age: 70 Year
  Sex: Female

DRUGS (6)
  1. OPDIVO [Suspect]
     Active Substance: NIVOLUMAB
     Indication: Gastric cancer
  2. FLUOROURACIL [Concomitant]
     Active Substance: FLUOROURACIL
     Indication: Product used for unknown indication
  3. OXALIPLATIN [Concomitant]
     Active Substance: OXALIPLATIN
     Indication: Product used for unknown indication
  4. DOCETAXEL [Concomitant]
     Active Substance: DOCETAXEL\DOCETAXEL ANHYDROUS
     Indication: Product used for unknown indication
  5. CAPECITABINE [Concomitant]
     Active Substance: CAPECITABINE
     Indication: Product used for unknown indication
  6. PACLITAXEL [Concomitant]
     Active Substance: PACLITAXEL
     Indication: Product used for unknown indication

REACTIONS (1)
  - Illness [Unknown]
